FAERS Safety Report 8814329 (Version 1)
Quarter: 2012Q4

REPORT INFORMATION
  Report Type: Report from Study
  Country: US (occurrence: US)
  Receive Date: 20120928
  Receipt Date: 20120928
  Transmission Date: 20130627
  Serious: Yes (Hospitalization)
  Sender: FDA-Public Use
  Company Number: US-BRISTOL-MYERS SQUIBB COMPANY-16978611

PATIENT
  Sex: Male

DRUGS (2)
  1. IPILIMUMAB [Suspect]
     Indication: METASTATIC MALIGNANT MELANOMA
     Dosage: Dose:1051mg
Last treatment on 28Apr2011
     Route: 042
     Dates: start: 20110428
  2. TEMODAR [Suspect]
     Indication: METASTATIC MALIGNANT MELANOMA
     Dosage: Tabs,Dose:460mg.
     Route: 048
     Dates: start: 20110428, end: 20110501

REACTIONS (2)
  - Anaemia [Unknown]
  - Diarrhoea [Unknown]
